FAERS Safety Report 25571110 (Version 3)
Quarter: 2025Q4

REPORT INFORMATION
  Report Type: Spontaneous
  Country: EU (occurrence: EU)
  Receive Date: 20250717
  Receipt Date: 20251112
  Transmission Date: 20260117
  Serious: Yes (Death, Hospitalization)
  Sender: JOHNSON AND JOHNSON
  Company Number: EU-JNJFOC-20250715552

PATIENT
  Age: 57 Year
  Sex: Female

DRUGS (10)
  1. RYBREVANT [Suspect]
     Active Substance: AMIVANTAMAB-VMJW
     Indication: Non-small cell lung cancer
     Dosage: C1D1
     Route: 065
     Dates: start: 20250307
  2. RYBREVANT [Suspect]
     Active Substance: AMIVANTAMAB-VMJW
     Dosage: C1D2-WEEK 2
     Route: 065
  3. RYBREVANT [Suspect]
     Active Substance: AMIVANTAMAB-VMJW
     Dosage: C1D8 AND C1D15-WEEK 3-5
     Route: 065
  4. LAZCLUZE [Suspect]
     Active Substance: LAZERTINIB
     Indication: Non-small cell lung cancer
     Route: 048
     Dates: start: 20250307
  5. DEXAMETHASONE [Concomitant]
     Active Substance: DEXAMETHASONE
     Indication: Product used for unknown indication
     Dosage: EVERY 12 HOURS ON DAY 1 OF AMIVANTAMAB
  6. DEXAMETHASONE [Concomitant]
     Active Substance: DEXAMETHASONE
     Dosage: EVERY 12 HOURS ON DAY 2 OF AMIVANTAMAB
  7. DOXYCYCLINE [Concomitant]
     Active Substance: DOXYCYCLINE
     Indication: Product used for unknown indication
     Dosage: 12 HOURS(WEEK 1-12)
  8. CHLORHEXIDINE [Concomitant]
     Active Substance: CHLORHEXIDINE
     Indication: Product used for unknown indication
  9. CERAMIDE GAMMA ORYZAONL AND COENZYME Q10 PLUS [Concomitant]
     Indication: Product used for unknown indication
  10. CLINDAMYCIN [Concomitant]
     Active Substance: CLINDAMYCIN
     Indication: Product used for unknown indication

REACTIONS (5)
  - Death [Fatal]
  - Cytokine release syndrome [Unknown]
  - Pneumonitis [Unknown]
  - Off label use [Unknown]
  - Skin fragility [Unknown]

NARRATIVE: CASE EVENT DATE: 20250731
